FAERS Safety Report 4388134-1 (Version None)
Quarter: 2004Q3

REPORT INFORMATION
  Report Type: 
  Country: None (occurrence: None)
  Receive Date: 20040701
  Receipt Date: 20040603
  Transmission Date: 20050211
  Serious: Yes (Hospitalization)
  Sender: FDA-Public Use
  Company Number: DE-BRISTOL-MYERS SQUIBB COMPANY-12604013

PATIENT
  Age: 61 Year
  Sex: Female
  Weight: 86 kg

DRUGS (4)
  1. CARBOPLATIN [Suspect]
     Indication: OVARIAN EPITHELIAL CANCER
     Dosage: 2ND CYCLE ADMINISTERED ON 18-MAY-2004
     Route: 042
     Dates: start: 20040518, end: 20040518
  2. CAELYX [Suspect]
     Indication: OVARIAN EPITHELIAL CANCER
     Dosage: 2ND CYCLE ADMINISTERED ON 18-MAY-2004
     Route: 042
  3. NAVOBAN [Concomitant]
     Indication: NAUSEA
     Route: 048
  4. METOCLOPRAMIDE [Concomitant]
     Indication: NAUSEA
     Route: 048

REACTIONS (1)
  - DEEP VEIN THROMBOSIS [None]
